FAERS Safety Report 8482167-1 (Version None)
Quarter: 2012Q3

REPORT INFORMATION
  Report Type: 
  Country: None (occurrence: None)
  Receive Date: 20120702
  Receipt Date: 20120620
  Transmission Date: 20120928
  Serious: Yes (Hospitalization)
  Sender: FDA-Public Use
  Company Number: NL-MEDIMMUNE-MEDI-0012379

PATIENT
  Age: 10 Month
  Sex: Male
  Weight: 9.2 kg

DRUGS (6)
  1. SODIUM CHLORIDE [Concomitant]
     Dosage: AS REQUIRED
     Route: 045
  2. SYNAGIS [Suspect]
     Indication: ANTIVIRAL PROPHYLAXIS
     Route: 030
     Dates: start: 20101005, end: 20101005
  3. ALBUTEROL SULATE [Concomitant]
     Dosage: 3 TO 5 UNITS DAILY
  4. SYNAGIS [Suspect]
     Route: 030
     Dates: start: 20101231, end: 20101231
  5. PARACETAMOL [Concomitant]
  6. SYNAGIS [Suspect]
     Route: 030
     Dates: start: 20110127

REACTIONS (1)
  - DYSPNOEA [None]
